FAERS Safety Report 6197666-5 (Version None)
Quarter: 2009Q2

REPORT INFORMATION
  Report Type: 
  Country: None (occurrence: None)
  Receive Date: 20090521
  Receipt Date: 20090519
  Transmission Date: 20091009
  Serious: Yes (Hospitalization)
  Sender: FDA-Public Use
  Company Number: KR-BRISTOL-MYERS SQUIBB COMPANY-14629844

PATIENT
  Age: 68 Year
  Sex: Female
  Weight: 59 kg

DRUGS (8)
  1. CISPLATIN [Suspect]
     Indication: GASTROOESOPHAGEAL CANCER
     Dosage: 80 MG/M2 ON DAY 1 OF CYCLE
     Route: 042
     Dates: start: 20090417, end: 20090417
  2. CETUXIMAB [Suspect]
     Indication: GASTROOESOPHAGEAL CANCER
     Dosage: CETUXIMAB 5MG/ML
     Route: 042
     Dates: start: 20090417
  3. CAPECITABINE [Suspect]
     Indication: GASTROOESOPHAGEAL CANCER
     Dosage: ON DAY 1-15
     Route: 048
     Dates: start: 20090417, end: 20090423
  4. PROPRANOLOL [Concomitant]
     Route: 048
     Dates: start: 20070111, end: 20090423
  5. TEVETEN [Concomitant]
     Route: 048
     Dates: start: 20070611, end: 20090423
  6. PROPAFENONE HCL [Concomitant]
     Dosage: GEN-PROPAFENONE
     Route: 048
     Dates: start: 20070402
  7. ATORVASTATIN CALCIUM [Concomitant]
     Route: 048
     Dates: start: 20080402
  8. ASPIRIN [Concomitant]
     Route: 048
     Dates: start: 20070111, end: 20090423

REACTIONS (1)
  - SYNCOPE [None]
